FAERS Safety Report 4792397-8 (Version None)
Quarter: 2005Q4

REPORT INFORMATION
  Report Type: 
  Country: None (occurrence: None)
  Receive Date: 20051010
  Receipt Date: 20051003
  Transmission Date: 20060501
  Serious: Yes (Hospitalization)
  Sender: FDA-Public Use
  Company Number: FR-BRISTOL-MYERS SQUIBB COMPANY-13133319

PATIENT
  Age: 62 Year
  Sex: Female

DRUGS (5)
  1. ZERIT [Suspect]
     Indication: HIV INFECTION
     Route: 048
     Dates: start: 19980219
  2. SUSTIVA [Suspect]
     Indication: HIV INFECTION
     Route: 048
     Dates: start: 19990408
  3. EPIVIR [Suspect]
     Indication: HIV INFECTION
     Dates: start: 19980219
  4. LEVOTHYROX [Suspect]
  5. BACTRIM [Suspect]

REACTIONS (1)
  - CONVULSION [None]
